FAERS Safety Report 6206076-3 (Version None)
Quarter: 2009Q2

REPORT INFORMATION
  Report Type: 
  Country: None (occurrence: None)
  Receive Date: 20090528
  Receipt Date: 20090525
  Transmission Date: 20091009
  Serious: Yes (Death, Other)
  Sender: FDA-Public Use
  Company Number: JP-BRISTOL-MYERS SQUIBB COMPANY-14633523

PATIENT
  Age: 54 Year
  Sex: Male

DRUGS (2)
  1. TAXOL [Suspect]
     Indication: NON-SMALL CELL LUNG CANCER
     Dosage: INITIATED ON 17APR09; 4TH INF SKIPPED; DURATION -3 DAYS
     Route: 041
     Dates: start: 20090513, end: 20090513
  2. PARAPLATIN [Suspect]
     Indication: NON-SMALL CELL LUNG CANCER
     Dosage: INITIATED ON 17APR09; 4TH INF SKIPPED; DURATION -3 DAYS
     Route: 041
     Dates: start: 20090513, end: 20090513

REACTIONS (2)
  - HEPATIC FUNCTION ABNORMAL [None]
  - MULTI-ORGAN FAILURE [None]
